FAERS Safety Report 12912414 (Version 1)
Quarter: 2016Q4

REPORT INFORMATION
  Report Type: Spontaneous
  Country: US (occurrence: US)
  Receive Date: 20161104
  Receipt Date: 20161104
  Transmission Date: 20170207
  Serious: Yes (Hospitalization, Other)
  Sender: FDA-Public Use
  Company Number: US-GLENMARK PHARMACEUTICALS EUROPE LIMITED-2016GMK024697

PATIENT
  Age: 21 Year
  Sex: Female

DRUGS (1)
  1. LAMOTRIGINE. [Suspect]
     Active Substance: LAMOTRIGINE
     Indication: BIPOLAR DISORDER
     Dosage: UNK
     Route: 065

REACTIONS (4)
  - Type 1 diabetes mellitus [Unknown]
  - Hypothyroidism [Unknown]
  - Hyperthyroidism [Unknown]
  - Drug reaction with eosinophilia and systemic symptoms [Recovering/Resolving]
